FAERS Safety Report 12290745 (Version 1)
Quarter: 2016Q2

REPORT INFORMATION
  Report Type: Spontaneous
  Country: US (occurrence: US)
  Receive Date: 20160421
  Receipt Date: 20160421
  Transmission Date: 20160815
  Serious: No
  Sender: FDA-Public Use
  Company Number: US-PFIZER INC-2016203109

PATIENT
  Age: 72 Year
  Sex: Female
  Weight: 84.8 kg

DRUGS (1)
  1. SUTENT [Suspect]
     Active Substance: SUNITINIB MALATE
     Indication: RENAL CELL CARCINOMA
     Dosage: 50 MG, CYCLIC (DAY 1 TO DAY 28, EVERY 42 DAYS)
     Route: 048
     Dates: start: 20160220, end: 2016

REACTIONS (4)
  - Fall [Unknown]
  - Gait disturbance [Unknown]
  - Dysgeusia [Unknown]
  - Rash macular [Unknown]

NARRATIVE: CASE EVENT DATE: 2016
